FAERS Safety Report 9186917 (Version 2)
Quarter: 2013Q2

REPORT INFORMATION
  Report Type: Spontaneous
  Country: US (occurrence: US)
  Receive Date: 20130325
  Receipt Date: 20130528
  Transmission Date: 20140414
  Serious: Yes (Other)
  Sender: FDA-Public Use
  Company Number: US-PFIZER INC-2013093071

PATIENT
  Age: 46 Year
  Sex: Female

DRUGS (6)
  1. CHANTIX [Suspect]
     Dosage: STARTER PACK
     Dates: start: 20091030, end: 20091126
  2. REQUIP [Concomitant]
     Indication: HYPERTENSION
     Dosage: 1 MG, 1X/DAY
  3. REQUIP [Concomitant]
     Indication: RESTLESS LEGS SYNDROME
  4. TEKTURNA [Concomitant]
     Dosage: 2X/DAY
  5. DIOVAN [Concomitant]
     Dosage: 1X/DAY
  6. ASMANEX [Concomitant]
     Dosage: UNK

REACTIONS (4)
  - Suicidal ideation [Unknown]
  - Depression [Unknown]
  - Emotional disorder [Unknown]
  - Anger [Unknown]
